FAERS Safety Report 12392544 (Version 1)
Quarter: 2016Q2

REPORT INFORMATION
  Report Type: Report from Study
  Country: BR (occurrence: BR)
  Receive Date: 20160523
  Receipt Date: 20160523
  Transmission Date: 20160815
  Serious: Yes (Hospitalization)
  Sender: FDA-Public Use
  Company Number: PHHY2016BR069886

PATIENT
  Sex: Male
  Weight: 78 kg

DRUGS (2)
  1. DIOVAN [Suspect]
     Active Substance: VALSARTAN
     Dosage: 320 MG, UNK
     Route: 048
  2. DIOVAN [Suspect]
     Active Substance: VALSARTAN
     Indication: BLOOD PRESSURE INCREASED
     Dosage: 1 DF (160 MG), QD
     Route: 048

REACTIONS (5)
  - Arrhythmia [Unknown]
  - Asthenia [Unknown]
  - Renal disorder [Unknown]
  - Blood glucose increased [Recovering/Resolving]
  - Headache [Unknown]
